FAERS Safety Report 8205911-7 (Version None)
Quarter: 2012Q1

REPORT INFORMATION
  Report Type: 
  Country: None (occurrence: None)
  Receive Date: 20120313
  Receipt Date: 20120306
  Transmission Date: 20120608
  Serious: Yes (Hospitalization, Other)
  Sender: FDA-Public Use
  Company Number: PHHO2011IT021398

PATIENT
  Sex: Male
  Weight: 72 kg

DRUGS (8)
  1. FUROSEMIDE [Suspect]
     Indication: CARDIAC FAILURE CHRONIC
     Dosage: 50 MG, OB
     Dates: start: 20110308
  2. VALSARTAN [Suspect]
     Indication: CARDIAC FAILURE CHRONIC
     Dosage: DOUBLE BLIND
     Route: 048
     Dates: start: 20111123
  3. BLINDED NO TREATMENT RECEIVED [Suspect]
     Indication: CARDIAC FAILURE CHRONIC
     Dosage: DOUBLE BLIND
     Route: 048
     Dates: start: 20111123
  4. ENALAPRIL MALEATE [Suspect]
     Indication: CARDIAC FAILURE CHRONIC
     Dosage: DOUBLE BLIND
     Route: 048
     Dates: start: 20111123
  5. KANRENOL [Concomitant]
     Indication: CARDIAC FAILURE CHRONIC
     Dosage: 50 MG, QD
     Dates: start: 20110308
  6. MINITRAN [Concomitant]
     Indication: ANGINA PECTORIS
     Dosage: 5 MG, TID
     Dates: start: 20110907
  7. BISOPROLOL FUMARATE [Concomitant]
     Indication: CARDIAC FAILURE CHRONIC
     Dosage: 1.25 MG, OB
     Dates: start: 20110907
  8. KANRENOL [Concomitant]
     Dosage: UNK

REACTIONS (4)
  - CARDIAC FAILURE ACUTE [None]
  - PULMONARY OEDEMA [None]
  - RENAL IMPAIRMENT [None]
  - DISEASE PROGRESSION [None]
